FAERS Safety Report 25556601 (Version 1)
Quarter: 2025Q3

REPORT INFORMATION
  Report Type: Spontaneous
  Country: US (occurrence: US)
  Receive Date: 20250715
  Receipt Date: 20250715
  Transmission Date: 20251020
  Serious: Yes (Death, Life-Threatening, Hospitalization, Other)
  Sender: PFIZER
  Company Number: US-PFIZER INC-202500140499

PATIENT
  Age: 71 Year
  Sex: Female

DRUGS (1)
  1. FLUCONAZOLE [Suspect]
     Active Substance: FLUCONAZOLE
     Indication: Upper respiratory fungal infection

REACTIONS (3)
  - Pulmonary mass [Fatal]
  - Lung disorder [Fatal]
  - Haemoptysis [Fatal]
